FAERS Safety Report 9054080 (Version 4)
Quarter: 2013Q1

REPORT INFORMATION
  Report Type: Spontaneous
  Country: US (occurrence: US)
  Receive Date: 20130208
  Receipt Date: 20130305
  Transmission Date: 20140127
  Serious: Yes (Hospitalization, Other)
  Sender: FDA-Public Use
  Company Number: US-JNJFOC-20121204357

PATIENT
  Sex: Male

DRUGS (2)
  1. XARELTO [Suspect]
     Indication: CEREBROVASCULAR ACCIDENT PROPHYLAXIS
     Route: 048
  2. XARELTO [Suspect]
     Indication: ATRIAL FIBRILLATION
     Route: 048

REACTIONS (7)
  - Gastrointestinal haemorrhage [Unknown]
  - Urinary tract infection [Unknown]
  - Anaemia [Unknown]
  - Occult blood positive [Unknown]
  - Pain [Unknown]
  - Cough [Unknown]
  - Diarrhoea [Unknown]
